FAERS Safety Report 10914834 (Version 2)
Quarter: 2015Q1

REPORT INFORMATION
  Report Type: Report from Study
  Country: US (occurrence: US)
  Receive Date: 20150313
  Receipt Date: 20150318
  Transmission Date: 20150721
  Serious: No
  Sender: FDA-Public Use
  Company Number: US-ASTRAZENECA-2015SE20689

PATIENT
  Sex: Female
  Weight: 75.3 kg

DRUGS (3)
  1. BYETTA [Suspect]
     Active Substance: EXENATIDE
     Indication: TYPE 2 DIABETES MELLITUS
     Route: 065
  2. BYDUREON [Suspect]
     Active Substance: EXENATIDE
     Indication: TYPE 2 DIABETES MELLITUS
     Route: 065
     Dates: start: 20150221
  3. GENERIC CENTROID [Concomitant]

REACTIONS (5)
  - Injection site extravasation [Unknown]
  - Weight fluctuation [Unknown]
  - Hunger [Unknown]
  - Headache [Unknown]
  - Injection site haemorrhage [Recovered/Resolved]
